FAERS Safety Report 6224495-6 (Version None)
Quarter: 2009Q2

REPORT INFORMATION
  Report Type: 
  Country: None (occurrence: None)
  Receive Date: 20090612
  Receipt Date: 20090319
  Transmission Date: 20091009
  Serious: No
  Sender: FDA-Public Use
  Company Number: US-ABBOTT-09P-163-0563814-00

PATIENT
  Sex: Female
  Weight: 69.008 kg

DRUGS (5)
  1. HUMIRA [Suspect]
     Indication: CROHN'S DISEASE
     Route: 058
     Dates: start: 20090128
  2. HUMIRA [Suspect]
     Route: 058
     Dates: start: 20070419, end: 20090101
  3. LAMICTAL [Concomitant]
     Indication: ANXIETY
     Route: 048
  4. WELLBUTRIN [Concomitant]
     Indication: DEPRESSION
     Route: 048
  5. AMBIEN [Concomitant]
     Indication: INSOMNIA
     Route: 048

REACTIONS (3)
  - CROHN'S DISEASE [None]
  - PRURITUS [None]
  - URTICARIA [None]
